FAERS Safety Report 26172594 (Version 1)
Quarter: 2025Q4

REPORT INFORMATION
  Report Type: Report from Study
  Country: CA (occurrence: CA)
  Receive Date: 20251218
  Receipt Date: 20251218
  Transmission Date: 20260118
  Serious: Yes (Hospitalization)
  Sender: ABBVIE
  Company Number: CA-ABBVIE-6589712

PATIENT
  Sex: Male

DRUGS (1)
  1. RINVOQ [Suspect]
     Active Substance: UPADACITINIB
     Indication: Crohn^s disease
     Dosage: FOR 12 WEEKS
     Route: 048

REACTIONS (3)
  - Hepatic pain [Not Recovered/Not Resolved]
  - Pyrexia [Recovering/Resolving]
  - Chest pain [Not Recovered/Not Resolved]
